FAERS Safety Report 7693667-6 (Version None)
Quarter: 2011Q3

REPORT INFORMATION
  Report Type: 
  Country: None (occurrence: None)
  Receive Date: 20110819
  Receipt Date: 20110817
  Transmission Date: 20111222
  Serious: No
  Sender: FDA-Public Use
  Company Number: US-PFIZER INC-2011189674

PATIENT
  Sex: Female
  Weight: 72.562 kg

DRUGS (2)
  1. DEXTROMETHORPHAN AND DEXTROMETHORPHAN HYDROBROMIDE AND GUAIFENESIN [Suspect]
     Indication: COUGH
     Dosage: UNK
     Route: 048
  2. ADVIL LIQUI-GELS [Suspect]
     Dosage: UNK

REACTIONS (4)
  - FEELING ABNORMAL [None]
  - FEELING COLD [None]
  - TERMINAL INSOMNIA [None]
  - DIZZINESS [None]
